FAERS Safety Report 25788111 (Version 1)
Quarter: 2025Q3

REPORT INFORMATION
  Report Type: Spontaneous
  Country: US (occurrence: US)
  Receive Date: 20250910
  Receipt Date: 20250910
  Transmission Date: 20251021
  Serious: Yes (Other)
  Sender: BRISTOL-MYERS SQUIBB COMPANY
  Company Number: US-BRISTOL-MYERS SQUIBB COMPANY-2025-124104

PATIENT
  Age: 62 Year
  Sex: Male

DRUGS (4)
  1. NELVUTAMIG [Suspect]
     Active Substance: NELVUTAMIG
     Indication: Hepatocellular carcinoma
  2. NELVUTAMIG [Suspect]
     Active Substance: NELVUTAMIG
     Indication: Metabolic dysfunction-associated steatohepatitis
  3. NIVOLUMAB [Suspect]
     Active Substance: NIVOLUMAB
     Indication: Hepatocellular carcinoma
  4. NIVOLUMAB [Suspect]
     Active Substance: NIVOLUMAB
     Indication: Metabolic dysfunction-associated steatohepatitis

REACTIONS (1)
  - Immune-mediated hepatic disorder [Recovered/Resolved]
